FAERS Safety Report 9886421 (Version 1)
Quarter: 2014Q1

REPORT INFORMATION
  Report Type: Spontaneous
  Country: US (occurrence: US)
  Receive Date: 20140210
  Receipt Date: 20140210
  Transmission Date: 20141002
  Serious: No
  Sender: FDA-Public Use
  Company Number: US-PFIZER INC-2014033698

PATIENT
  Sex: Female

DRUGS (1)
  1. CHANTIX [Suspect]
     Dosage: UNK
     Dates: start: 2010, end: 2010

REACTIONS (4)
  - Mental disorder [Unknown]
  - Anger [Unknown]
  - Mood altered [Unknown]
  - Aggression [Unknown]
